FAERS Safety Report 25497902 (Version 2)
Quarter: 2025Q3

REPORT INFORMATION
  Report Type: Report from Study
  Country: CA (occurrence: CA)
  Receive Date: 20250701
  Receipt Date: 20250723
  Transmission Date: 20251021
  Serious: Yes (Hospitalization, Other)
  Sender: ABBVIE
  Company Number: CA-ABBVIE-6339294

PATIENT
  Sex: Male

DRUGS (2)
  1. RINVOQ [Suspect]
     Active Substance: UPADACITINIB
     Indication: Crohn^s disease
     Dosage: FORM STRENGTH:15 MG
     Route: 048
  2. RINVOQ [Suspect]
     Active Substance: UPADACITINIB
     Indication: Crohn^s disease
     Route: 048

REACTIONS (9)
  - Gastrointestinal carcinoma [Unknown]
  - Intestinal cyst [Unknown]
  - Haemorrhagic cyst [Not Recovered/Not Resolved]
  - Intestinal polyp [Unknown]
  - Mass [Not Recovered/Not Resolved]
  - Small intestinal resection [Unknown]
  - Anxiety [Unknown]
  - Eye pruritus [Unknown]
  - Weight decreased [Unknown]
